FAERS Safety Report 25419334 (Version 1)
Quarter: 2025Q2

REPORT INFORMATION
  Report Type: Spontaneous
  Country: HR (occurrence: HR)
  Receive Date: 20250610
  Receipt Date: 20250610
  Transmission Date: 20250716
  Serious: Yes (Other)
  Sender: BRISTOL-MYERS SQUIBB COMPANY
  Company Number: HR-BRISTOL-MYERS SQUIBB COMPANY-2025-081917

PATIENT
  Age: 74 Year
  Sex: Female
  Weight: 50 kg

DRUGS (8)
  1. ELIQUIS [Suspect]
     Active Substance: APIXABAN
     Indication: Product used for unknown indication
     Dates: end: 202412
  2. ELIQUIS [Suspect]
     Active Substance: APIXABAN
     Dates: start: 202503
  3. ELIQUIS [Suspect]
     Active Substance: APIXABAN
  4. NEBIVOLOL [Suspect]
     Active Substance: NEBIVOLOL
     Indication: Product used for unknown indication
     Dosage: 1X/DAY
  5. PROPAFENONE [Suspect]
     Active Substance: PROPAFENONE
     Indication: Product used for unknown indication
     Dosage: 2X/DAY
  6. ATORVASTATIN CALCIUM [Suspect]
     Active Substance: ATORVASTATIN CALCIUM
     Indication: Product used for unknown indication
     Dosage: 1X/DAY
  7. FLUTICASONE FUROATE\VILANTEROL TRIFENATATE [Suspect]
     Active Substance: FLUTICASONE FUROATE\VILANTEROL TRIFENATATE
     Indication: Product used for unknown indication
     Dosage: 1X/DAY
  8. DIGITALIS [Concomitant]
     Active Substance: DIGITALIS
     Indication: Product used for unknown indication

REACTIONS (3)
  - Paroxysmal arrhythmia [Unknown]
  - Atrial tachycardia [Unknown]
  - Deep vein thrombosis [Unknown]

NARRATIVE: CASE EVENT DATE: 20250301
